FAERS Safety Report 23196831 (Version 3)
Quarter: 2023Q4

REPORT INFORMATION
  Report Type: Spontaneous
  Country: US (occurrence: US)
  Receive Date: 20231117
  Receipt Date: 20231221
  Transmission Date: 20240109
  Serious: Yes (Hospitalization, Other)
  Sender: FDA-Public Use
  Company Number: US-PFIZER INC-202300361994

PATIENT
  Age: 89 Year
  Sex: Male
  Weight: 66.22 kg

DRUGS (2)
  1. VYNDAMAX [Suspect]
     Active Substance: TAFAMIDIS
     Indication: Liver disorder
     Dosage: 61 MG, 1X/DAY SWALLOW WITH WATER
     Route: 048
  2. VYNDAMAX [Suspect]
     Active Substance: TAFAMIDIS
     Dosage: 61MG EVERY MORNING
     Dates: start: 2022

REACTIONS (14)
  - Cardiac failure [Unknown]
  - Venous stent insertion [Unknown]
  - Tremor [Unknown]
  - Gait disturbance [Unknown]
  - Malaise [Unknown]
  - Weight decreased [Unknown]
  - Illness [Not Recovered/Not Resolved]
  - Abdominal discomfort [Unknown]
  - Peripheral swelling [Unknown]
  - Contusion [Unknown]
  - Haemorrhage [Unknown]
  - Blood glucose abnormal [Unknown]
  - Expired product administered [Unknown]
  - Product use in unapproved indication [Unknown]
